FAERS Safety Report 4806034-7 (Version None)
Quarter: 2005Q4

REPORT INFORMATION
  Report Type: 
  Country: None (occurrence: None)
  Receive Date: 20051019
  Receipt Date: 20051006
  Transmission Date: 20060501
  Serious: Yes (Hospitalization, Other)
  Sender: FDA-Public Use
  Company Number: HQWYE93681OCT05

PATIENT
  Sex: Female

DRUGS (1)
  1. PREMPRO [Suspect]
     Dosage: ORAL
     Route: 048
     Dates: start: 19550101, end: 20020101

REACTIONS (4)
  - BREAST CANCER [None]
  - BREAST HYPERPLASIA [None]
  - BREAST MICROCALCIFICATION [None]
  - FIBROCYSTIC BREAST DISEASE [None]
